FAERS Safety Report 9459621 (Version 1)
Quarter: 2013Q3

REPORT INFORMATION
  Report Type: Spontaneous
  Country: PR (occurrence: PR)
  Receive Date: 20130815
  Receipt Date: 20130815
  Transmission Date: 20140515
  Serious: No
  Sender: FDA-Public Use
  Company Number: PR-COVIDIEN/TYCO HEALTHCARE/MALLINCKRODT-T201303840

PATIENT
  Age: 41 Year
  Sex: Male
  Weight: 72.56 kg

DRUGS (4)
  1. FENTANYL TRANSDERMAL SYSTEM [Suspect]
     Indication: PAIN
     Dosage: 100 UG/HR, Q 72 HRS
     Route: 062
  2. VICOPROFEN [Suspect]
     Indication: PAIN
     Dosage: UNK
     Route: 048
     Dates: end: 201304
  3. DEPAKOTE [Concomitant]
     Indication: CONVULSION
     Dosage: UNK
  4. KLONOPIN [Concomitant]
     Indication: CONVULSION
     Dosage: 2 MG, UNK

REACTIONS (5)
  - Wrong technique in drug usage process [Not Recovered/Not Resolved]
  - Local swelling [Recovered/Resolved]
  - Application site discolouration [Not Recovered/Not Resolved]
  - Drug effect decreased [Not Recovered/Not Resolved]
  - Product adhesion issue [Not Recovered/Not Resolved]
